FAERS Safety Report 5872492-2 (Version None)
Quarter: 2008Q3

REPORT INFORMATION
  Report Type: 
  Country: None (occurrence: None)
  Receive Date: 20080829
  Receipt Date: 20080814
  Transmission Date: 20090109
  Serious: Yes (Other)
  Sender: FDA-Public Use
  Company Number: 2008S1015070

PATIENT
  Sex: Male

DRUGS (6)
  1. PAROXETINE HCL [Suspect]
     Indication: POST-TRAUMATIC STRESS DISORDER
     Dosage: 20 MG;
     Dates: start: 19990201, end: 20030101
  2. CARBAMAZEPINE (CON.) [Concomitant]
  3. DIAZEPAM (CON.) [Concomitant]
  4. EPANUTIN (CON.) [Concomitant]
  5. ESCITALOPRAM (CON.) [Concomitant]
  6. TRAMADOL HYDROCHLORIDE (CON.) [Concomitant]

REACTIONS (15)
  - ABNORMAL DREAMS [None]
  - ANGER [None]
  - BRUXISM [None]
  - DEHYDRATION [None]
  - DISTURBANCE IN ATTENTION [None]
  - DRUG WITHDRAWAL SYNDROME [None]
  - INDIFFERENCE [None]
  - MELAENA [None]
  - MEMORY IMPAIRMENT [None]
  - MOOD SWINGS [None]
  - NAUSEA [None]
  - PANIC ATTACK [None]
  - RECTAL HAEMORRHAGE [None]
  - SUICIDAL IDEATION [None]
  - TINNITUS [None]
